FAERS Safety Report 13734839 (Version 1)
Quarter: 2017Q3

REPORT INFORMATION
  Report Type: Report from Study
  Country: BR (occurrence: BR)
  Receive Date: 20170710
  Receipt Date: 20170710
  Transmission Date: 20171127
  Serious: Yes (Other)
  Sender: FDA-Public Use
  Company Number: BR-ROCHE-1777778

PATIENT
  Age: 48 Year
  Sex: Female
  Weight: 114 kg

DRUGS (11)
  1. XOLAIR [Suspect]
     Active Substance: OMALIZUMAB
     Dosage: 150 MG (1+1)
     Route: 058
     Dates: start: 20170622
  2. SYMBICORT [Concomitant]
     Active Substance: BUDESONIDE\FORMOTEROL FUMARATE DIHYDRATE
     Indication: ASTHMA
     Dosage: 2 DF (TWO INHALATIONS), QD
     Route: 055
     Dates: start: 2004
  3. RIVOTRIL [Concomitant]
     Active Substance: CLONAZEPAM
     Indication: LABYRINTHITIS
     Dosage: 3 DRP, QD, STARTED USING 5 YEARS AGO
     Route: 048
  4. LEVOCETIRIZINE HYDROCHLORIDE [Concomitant]
     Active Substance: LEVOCETIRIZINE HYDROCHLORIDE
     Indication: RHINITIS
     Route: 065
  5. LABIRIN [Concomitant]
     Active Substance: BETAHISTINE
     Indication: LABYRINTHITIS
     Dosage: 24 MG, BID, STARTED USING 3 OR 4 YEARS AGO
     Route: 048
  6. LEVOCETIRIZINE HYDROCHLORIDE [Concomitant]
     Active Substance: LEVOCETIRIZINE HYDROCHLORIDE
     Indication: URTICARIA
     Dosage: 1 DF, QD, STARTED USING 4 YEARS AGO
     Route: 048
  7. XOLAIR [Suspect]
     Active Substance: OMALIZUMAB
     Indication: ASTHMA
     Dosage: 300 MG, BIW
     Route: 058
     Dates: start: 20150404
  8. XOLAIR [Suspect]
     Active Substance: OMALIZUMAB
     Dosage: UNK
     Route: 058
     Dates: start: 201601
  9. XOLAIR [Suspect]
     Active Substance: OMALIZUMAB
     Dosage: 150 MG (1+1)
     Route: 058
  10. TANACETUM PARTHENIUM [Concomitant]
     Active Substance: TANACETUM PARTHENIUM
     Indication: MIGRAINE
     Dosage: 120 MG, QD, STARTED USING 5 YEARS AGO
     Route: 048
  11. XOLAIR [Suspect]
     Active Substance: OMALIZUMAB
     Dosage: 150 MG (1+1)
     Route: 058
     Dates: start: 201601

REACTIONS (17)
  - Gastrointestinal bacterial infection [Recovered/Resolved]
  - Somnolence [Recovering/Resolving]
  - Fatigue [Recovering/Resolving]
  - Product use issue [Unknown]
  - Headache [Recovering/Resolving]
  - Sleep disorder [Recovering/Resolving]
  - Dysuria [Not Recovered/Not Resolved]
  - Cystitis [Unknown]
  - Suffocation feeling [Unknown]
  - Dyspnoea [Unknown]
  - Bronchitis [Recovered/Resolved]
  - Pruritus generalised [Recovered/Resolved]
  - Gastrointestinal disorder [Unknown]
  - Arthralgia [Recovering/Resolving]
  - Pyrexia [Unknown]
  - Spine malformation [Recovering/Resolving]
  - Viral infection [Unknown]

NARRATIVE: CASE EVENT DATE: 20160422
